FAERS Safety Report 22396435 (Version 1)
Quarter: 2023Q2

REPORT INFORMATION
  Report Type: Spontaneous
  Country: US (occurrence: US)
  Receive Date: 20230601
  Receipt Date: 20230601
  Transmission Date: 20230721
  Serious: No
  Sender: FDA-Public Use
  Company Number: US-APIL-2315222US

PATIENT
  Sex: Female
  Weight: 68 kg

DRUGS (3)
  1. LILETTA [Suspect]
     Active Substance: LEVONORGESTREL
     Indication: Contraception
     Dosage: 52 MG, SINGLE
     Route: 015
     Dates: start: 20230407
  2. NAPROSYN [Concomitant]
     Active Substance: NAPROXEN
     Indication: Pain
     Dosage: 1 TABLET 2 TIMES DAILY AS NEEDED
     Route: 048
  3. PROVENTIL HFA [SALBUTAMOL] [Concomitant]
     Dosage: 2 PUFFS BY MOUTH EVERY 4 HOURS AS NEEDED

REACTIONS (1)
  - Device expulsion [Unknown]
